FAERS Safety Report 17164919 (Version 1)
Quarter: 2019Q4

REPORT INFORMATION
  Report Type: Spontaneous
  Country: US (occurrence: US)
  Receive Date: 20191217
  Receipt Date: 20191217
  Transmission Date: 20200122
  Serious: No
  Sender: FDA-Public Use
  Company Number: US-ROCHE-2413162

PATIENT
  Sex: Female
  Weight: 55.84 kg

DRUGS (1)
  1. LUCENTIS [Suspect]
     Active Substance: RANIBIZUMAB
     Indication: RETINAL VEIN OCCLUSION
     Dosage: YES
     Route: 050
     Dates: start: 20190816

REACTIONS (2)
  - Drug ineffective [Unknown]
  - No adverse event [Unknown]
